FAERS Safety Report 18017084 (Version 1)
Quarter: 2020Q3

REPORT INFORMATION
  Report Type: Report from Study
  Country: CA (occurrence: CA)
  Receive Date: 20200714
  Receipt Date: 20200714
  Transmission Date: 20201103
  Serious: Yes (Other)
  Sender: FDA-Public Use
  Company Number: CA-ACCORD-189423

PATIENT
  Sex: Female

DRUGS (17)
  1. COSENTYX [Suspect]
     Active Substance: SECUKINUMAB
     Indication: ANKYLOSING SPONDYLITIS
     Dosage: FREQUENCY: 1 EVERY 1 WEEKS
     Route: 058
  2. VOLTAREN [Suspect]
     Active Substance: DICLOFENAC SODIUM
     Indication: PRODUCT USED FOR UNKNOWN INDICATION
     Route: 048
  3. CELEBREX [Concomitant]
     Active Substance: CELECOXIB
  4. HUMIRA [Concomitant]
     Active Substance: ADALIMUMAB
  5. TYLENOL [Concomitant]
     Active Substance: ACETAMINOPHEN
  6. COSENTYX [Suspect]
     Active Substance: SECUKINUMAB
     Indication: ANKYLOSING SPONDYLITIS
     Dosage: FREQUENCY: 1 EVERY 1 WEEKS
     Route: 058
  7. COSENTYX [Suspect]
     Active Substance: SECUKINUMAB
     Indication: ANKYLOSING SPONDYLITIS
     Dosage: FREQUENCY: 1 EVERY 1 WEEKS
     Route: 058
  8. IMURAN [Concomitant]
     Active Substance: AZATHIOPRINE
  9. REMICADE [Concomitant]
     Active Substance: INFLIXIMAB
  10. ACTEMRA [Concomitant]
     Active Substance: TOCILIZUMAB
  11. RITUXAN [Concomitant]
     Active Substance: RITUXIMAB
  12. SIMPONI [Concomitant]
     Active Substance: GOLIMUMAB
  13. ENBREL [Concomitant]
     Active Substance: ETANERCEPT
  14. INDOMETACIN [Suspect]
     Active Substance: INDOMETHACIN
     Indication: PRODUCT USED FOR UNKNOWN INDICATION
  15. DESOXIMETASONE. [Concomitant]
     Active Substance: DESOXIMETASONE
  16. METHOTREXATE. [Suspect]
     Active Substance: METHOTREXATE
     Indication: PRODUCT USED FOR UNKNOWN INDICATION
  17. VOLTAREN [Suspect]
     Active Substance: DICLOFENAC SODIUM
     Indication: PRODUCT USED FOR UNKNOWN INDICATION
     Route: 061

REACTIONS (2)
  - Influenza like illness [Recovered/Resolved]
  - Pancreatitis [Recovered/Resolved]
